FAERS Safety Report 8825865 (Version 3)
Quarter: 2012Q4

REPORT INFORMATION
  Report Type: 
  Country: US (occurrence: US)
  Receive Date: 20121005
  Receipt Date: 20121217
  Transmission Date: 20130627
  Serious: Yes (Other)
  Sender: FDA-Public Use
  Company Number: US-PURDUE-USA-2012-0093433

PATIENT
  Age: 84 Year
  Sex: Female
  Weight: 69.84 kg

DRUGS (13)
  1. COLACE [Suspect]
     Indication: CONSTIPATION
     Dosage: 100 mg, daily
     Route: 048
  2. OMEPRAZOLE [Interacting]
     Indication: PRODUCT USED FOR UNKNOWN INDICATION
     Dosage: 20 mg, unk
  3. CENTRUM SILVER [Interacting]
     Indication: PRODUCT USED FOR UNKNOWN INDICATION
     Dosage: UNK unk, unk
  4. SPIRONOLACTONE W/HYDROCHLOROTHIAZIDE [Interacting]
     Indication: PRODUCT USED FOR UNKNOWN INDICATION
     Dosage: 25 mg, daily
  5. OMEGA 3 [Interacting]
     Indication: PRODUCT USED FOR UNKNOWN INDICATION
     Dosage: UNK Capsl, UNK
  6. SUPER B COMPLEX [Interacting]
     Indication: PRODUCT USED FOR UNKNOWN INDICATION
     Dosage: UNK
  7. BIOTIN [Interacting]
     Indication: PRODUCT USED FOR UNKNOWN INDICATION
     Dosage: 5000 mcg, unk
  8. CALTRATE WITH VITAMIN D [Interacting]
     Indication: PRODUCT USED FOR UNKNOWN INDICATION
     Dosage: 600 unk, unk
  9. COLON HEALTH PROBIOTIC [Interacting]
     Indication: PRODUCT USED FOR UNKNOWN INDICATION
     Dosage: UNK Capsl, UNK
  10. METOPROLOL [Interacting]
     Indication: PRODUCT USED FOR UNKNOWN INDICATION
     Dosage: 12 mg, daily
  11. PRAVASTATIN [Suspect]
     Indication: PRODUCT USED FOR UNKNOWN INDICATION
     Dosage: UNK tablet, daily
  12. BAYER ASPIRIN [Interacting]
     Indication: PRODUCT USED FOR UNKNOWN INDICATION
     Dosage: 325 unk, unk
  13. METAMUCIL [Interacting]
     Indication: PRODUCT USED FOR UNKNOWN INDICATION
     Dosage: UNK unk, unk

REACTIONS (3)
  - Blindness transient [Unknown]
  - Syncope [Unknown]
  - Drug interaction [Unknown]
